FAERS Safety Report 10224701 (Version 1)
Quarter: 2014Q2

REPORT INFORMATION
  Report Type: Spontaneous
  Country: US (occurrence: US)
  Receive Date: 20140609
  Receipt Date: 20140609
  Transmission Date: 20141212
  Serious: Yes (Hospitalization)
  Sender: FDA-Public Use
  Company Number: US-TAKEDA-2014TUS004402

PATIENT
  Age: 51 Year
  Sex: Male

DRUGS (11)
  1. BRINTELLIX [Suspect]
     Indication: MAJOR DEPRESSION
     Dosage: 10 MG, QD
     Route: 048
     Dates: start: 20140523, end: 20140526
  2. METOPROLOL [Interacting]
     Indication: HYPERTENSION
     Dosage: 50 MG, BID
     Route: 048
     Dates: end: 20140526
  3. DEPAKOTE [Concomitant]
     Dosage: UNK
     Route: 048
  4. L-METHYLFOLATE [Concomitant]
     Dosage: UNK
     Route: 048
  5. LAMICTAL [Concomitant]
     Dosage: 100 MG, TID
     Route: 048
  6. KEPPRA [Concomitant]
     Dosage: 1000 MG, UNK
     Route: 048
  7. PRILOSEC                           /00661201/ [Concomitant]
     Indication: DYSPEPSIA
     Dosage: 20 MG, QD
     Route: 048
  8. PRAZOSIN [Concomitant]
     Dosage: UNK
     Route: 048
  9. SIMVASTATIN [Concomitant]
     Dosage: UNK
     Route: 048
  10. LASIX                              /00032601/ [Concomitant]
     Dosage: UNK
     Route: 048
  11. OTHER UNKNOWN MEDS [Concomitant]
     Dosage: UNK

REACTIONS (3)
  - Bradycardia [Unknown]
  - Hypertension [Unknown]
  - Drug interaction [Unknown]
